FAERS Safety Report 10335454 (Version 1)
Quarter: 2014Q3

REPORT INFORMATION
  Report Type: Spontaneous
  Country: US (occurrence: None)
  Receive Date: 20140722
  Receipt Date: 20140722
  Transmission Date: 20150326
  Serious: No
  Sender: FDA-Public Use
  Company Number: None

PATIENT
  Age: 23 Year
  Sex: Female

DRUGS (1)
  1. METRONIDAZOLE. [Suspect]
     Active Substance: METRONIDAZOLE
     Indication: BACTERIAL VAGINOSIS
     Route: 067
     Dates: start: 20140624, end: 20140630

REACTIONS (4)
  - Exposure during pregnancy [None]
  - Foetal death [None]
  - Application site discharge [None]
  - Vaginal discharge [None]

NARRATIVE: CASE EVENT DATE: 20140628
